FAERS Safety Report 17710448 (Version 1)
Quarter: 2020Q2

REPORT INFORMATION
  Report Type: Spontaneous
  Country: BG (occurrence: BG)
  Receive Date: 20200427
  Receipt Date: 20200427
  Transmission Date: 20200714
  Serious: Yes (Death, Hospitalization)
  Sender: FDA-Public Use
  Company Number: BG-BAUSCH-BL-2020-011466

PATIENT
  Age: 49 Year
  Sex: Female

DRUGS (7)
  1. ETOPOSIDE. [Suspect]
     Active Substance: ETOPOSIDE
     Indication: HODGKIN^S DISEASE STAGE IV
     Dosage: SET ON SIX-CYCLES DOSE-ESCALATED, IN CYCLES OF 21 DAYS WITH NO DRUGS GIVEN ON DAYS 15-21
     Route: 065
  2. DOXORUBICIN [Suspect]
     Active Substance: DOXORUBICIN
     Indication: HODGKIN^S DISEASE STAGE IV
     Dosage: SET ON SIX-CYCLES DOSE-ESCALATED, IN CYCLES OF 21 DAYS WITH NO DRUGS GIVEN ON DAYS 15-21
     Route: 065
  3. VINCRISTINE [Suspect]
     Active Substance: VINCRISTINE
     Indication: HODGKIN^S DISEASE STAGE IV
     Dosage: SET ON SIX-CYCLES DOSE-ESCALATED, IN CYCLES OF 21 DAYS WITH NO DRUGS GIVEN ON DAYS 15-21
     Route: 065
  4. PREDNISOLONE. [Suspect]
     Active Substance: PREDNISOLONE
     Indication: HODGKIN^S DISEASE STAGE IV
     Dosage: SET ON SIX-CYCLES DOSE-ESCALATED, IN CYCLES OF 21 DAYS WITH NO DRUGS GIVEN ON DAYS 15-21
     Route: 065
  5. PROCARBAZINE [Suspect]
     Active Substance: PROCARBAZINE
     Indication: HODGKIN^S DISEASE STAGE IV
     Dosage: SET ON SIX-CYCLES DOSE-ESCALATED, IN CYCLES OF 21 DAYS WITH NO DRUGS GIVEN ON DAYS 15-21
     Route: 065
  6. BLEOMYCIN [Suspect]
     Active Substance: BLEOMYCIN SULFATE
     Indication: HODGKIN^S DISEASE STAGE IV
     Dosage: SET ON SIX-CYCLES DOSE-ESCALATED, IN CYCLES OF 21 DAYS WITH NO DRUGS GIVEN ON DAYS 15-21
     Route: 065
  7. CYCLOPHOSPHAMIDE. [Suspect]
     Active Substance: CYCLOPHOSPHAMIDE
     Indication: HODGKIN^S DISEASE STAGE IV
     Dosage: SET ON SIX-CYCLES DOSE-ESCALATED, IN CYCLES OF 21 DAYS WITH NO DRUGS GIVEN ON DAYS 15-21
     Route: 065

REACTIONS (5)
  - Influenza [Fatal]
  - Acute respiratory failure [Fatal]
  - Listeria sepsis [Fatal]
  - Circulatory collapse [Fatal]
  - Listeria encephalitis [Fatal]
